FAERS Safety Report 7244071-6 (Version None)
Quarter: 2010Q4

REPORT INFORMATION
  Report Type: 
  Country: None (occurrence: None)
  Receive Date: 20101130
  Receipt Date: 20100811
  Transmission Date: 20110411
  Serious: Yes (Other)
  Sender: FDA-Public Use
  Company Number: 2010SP043735

PATIENT
  Sex: Female

DRUGS (2)
  1. NUVARING [Suspect]
     Indication: CONTRACEPTION
     Dosage: VAG
     Route: 067
     Dates: start: 20100730, end: 20100810
  2. SYNTHROID [Concomitant]

REACTIONS (4)
  - BREAST TENDERNESS [None]
  - TOXIC SHOCK SYNDROME [None]
  - URINARY INCONTINENCE [None]
  - VULVOVAGINAL BURNING SENSATION [None]
